FAERS Safety Report 4850641-2 (Version None)
Quarter: 2005Q4

REPORT INFORMATION
  Report Type: 
  Country: None (occurrence: None)
  Receive Date: 20051212
  Receipt Date: 20051201
  Transmission Date: 20060501
  Serious: Yes (Other)
  Sender: FDA-Public Use
  Company Number: FR-JNJFOC-20050104880

PATIENT
  Age: 68 Year
  Sex: Female
  Weight: 60 kg

DRUGS (13)
  1. REMICADE [Suspect]
     Dosage: 24TH INFUSION
     Route: 042
  2. REMICADE [Suspect]
     Dosage: 2ND INFUSION
     Route: 042
  3. REMICADE [Suspect]
     Indication: RHEUMATOID ARTHRITIS
     Dosage: 1ST INFUSION
     Route: 042
  4. HYPERIUM [Concomitant]
     Route: 048
  5. KARDEGIC [Concomitant]
     Route: 048
  6. SOTALOL HCL [Concomitant]
     Route: 048
  7. NOVATREX [Concomitant]
     Indication: RHEUMATOID ARTHRITIS
     Route: 048
  8. NAPROXEN [Concomitant]
     Indication: RHEUMATOID ARTHRITIS
     Route: 048
  9. PROPOFOL [Concomitant]
     Route: 048
  10. PROPOFOL [Concomitant]
     Route: 048
  11. PROPOFOL [Concomitant]
     Route: 048
  12. PROPOFOL [Concomitant]
     Route: 048
  13. PROPOFOL [Concomitant]
     Indication: RHEUMATOID ARTHRITIS
     Dosage: 6 TABLETS
     Route: 048

REACTIONS (1)
  - EPIDERMOLYSIS BULLOSA [None]
